FAERS Safety Report 6010980-9 (Version None)
Quarter: 2008Q4

REPORT INFORMATION
  Report Type: 
  Country: None (occurrence: None)
  Receive Date: 20081218
  Receipt Date: 20081210
  Transmission Date: 20090506
  Serious: Yes (Hospitalization)
  Sender: FDA-Public Use
  Company Number: B0549981A

PATIENT
  Age: 74 Year
  Sex: Female

DRUGS (12)
  1. AUGMENTIN '125' [Suspect]
     Dosage: 1G THREE TIMES PER DAY
     Route: 048
     Dates: start: 20080905, end: 20080925
  2. CARDENSIEL [Suspect]
     Indication: HYPERTENSION
     Dosage: 2.5MG PER DAY
     Route: 048
  3. DEPAKENE [Concomitant]
     Indication: EPILEPSY
     Dosage: 250MG PER DAY
     Route: 048
  4. TRIATEC [Concomitant]
     Indication: HYPERTENSION
     Dosage: 2.5MG PER DAY
     Route: 048
  5. ADANCOR [Concomitant]
     Dosage: 20MG TWICE PER DAY
     Route: 048
  6. FONZYLANE [Concomitant]
     Dosage: 150MG TWICE PER DAY
     Route: 048
  7. KARDEGIC [Concomitant]
     Indication: THROMBOSIS PROPHYLAXIS
     Dosage: 75MG PER DAY
     Route: 048
  8. PLAVIX [Concomitant]
     Indication: THROMBOSIS PROPHYLAXIS
     Dosage: 75MG PER DAY
     Route: 048
  9. CRESTOR [Concomitant]
     Dosage: 5MG PER DAY
     Route: 048
  10. ATHYMIL [Concomitant]
     Indication: DEPRESSION
     Dosage: 10MG PER DAY
     Route: 048
  11. LANTUS [Concomitant]
     Route: 058
  12. HUMALOG [Concomitant]
     Route: 058

REACTIONS (2)
  - BLOOD CREATINE INCREASED [None]
  - HAEMOLYTIC ANAEMIA [None]
